FAERS Safety Report 15954426 (Version 1)
Quarter: 2019Q1

REPORT INFORMATION
  Report Type: Spontaneous
  Country: FR (occurrence: FR)
  Receive Date: 20190213
  Receipt Date: 20190213
  Transmission Date: 20190417
  Serious: Yes (Life-Threatening, Other)
  Sender: FDA-Public Use
  Company Number: FR-AUROBINDO-AUR-APL-2019-006922

PATIENT

DRUGS (3)
  1. TRAMADOL. [Suspect]
     Active Substance: TRAMADOL
     Indication: FIBROMYALGIA
     Dosage: 150 MILLIGRAM, DAILY
     Route: 048
     Dates: end: 20190115
  2. NOCERTONE [Interacting]
     Active Substance: OXETORONE
     Indication: MIGRAINE
     Dosage: UNK
     Route: 048
     Dates: start: 2017, end: 20190114
  3. FENTANYL. [Interacting]
     Active Substance: FENTANYL
     Indication: FIBROMYALGIA
     Dosage: 25 MICROGRAM, EVERY HOUR
     Route: 062
     Dates: start: 20190114, end: 20190115

REACTIONS (1)
  - Coma [Recovered/Resolved]

NARRATIVE: CASE EVENT DATE: 20190115
